FAERS Safety Report 20329373 (Version 1)
Quarter: 2022Q1

REPORT INFORMATION
  Report Type: Spontaneous
  Country: US (occurrence: None)
  Receive Date: 20220112
  Receipt Date: 20220112
  Transmission Date: 20220423
  Serious: No
  Sender: FDA-Public Use
  Company Number: None

PATIENT
  Age: 79 Year
  Sex: Female
  Weight: 54 kg

DRUGS (1)
  1. IBRANCE [Suspect]
     Active Substance: PALBOCICLIB
     Indication: Breast cancer
     Dosage: FREQUENCY : DAILY;?
     Route: 048
     Dates: start: 20211124, end: 20220112

REACTIONS (6)
  - Palpitations [None]
  - Gait inability [None]
  - Tremor [None]
  - Asthenia [None]
  - Faeces discoloured [None]
  - Urine abnormality [None]

NARRATIVE: CASE EVENT DATE: 20220112
